FAERS Safety Report 13922096 (Version 1)
Quarter: 2017Q3

REPORT INFORMATION
  Report Type: Spontaneous
  Country: US (occurrence: US)
  Receive Date: 20170830
  Receipt Date: 20170830
  Transmission Date: 20171127
  Serious: No
  Sender: FDA-Public Use
  Company Number: US-TARO-2017TAR00188

PATIENT
  Sex: Female
  Weight: 56.69 kg

DRUGS (12)
  1. ESCITALOPRAM [Concomitant]
     Active Substance: ESCITALOPRAM OXALATE
     Dosage: 1.25 MG, 1X/DAY
  2. MAGNESIUM [Concomitant]
     Active Substance: MAGNESIUM
  3. OMEGA-3 ACIDS [Concomitant]
     Active Substance: OMEGA-3 FATTY ACIDS
  4. WARFARIN SODIUM TABLETS USP 5MG [Suspect]
     Active Substance: WARFARIN SODIUM
     Dosage: 10 MG, 1X/DAY ONE DAY A WEEK
     Route: 048
     Dates: start: 200603
  5. CALCIUM [Concomitant]
     Active Substance: CALCIUM
  6. VITAMIN D3 [Concomitant]
     Active Substance: CHOLECALCIFEROL
  7. UNSPECIFIED SUPPLEMENTS [Concomitant]
  8. WARFARIN SODIUM TABLETS USP 5MG [Suspect]
     Active Substance: WARFARIN SODIUM
     Indication: ARTIFICIAL HEART IMPLANT
     Dosage: 7.5 MG, 1X/DAY SIX DAYS A WEEK
     Route: 048
     Dates: start: 200603
  9. UNSPECIFIED MULTIVITAMIN [Concomitant]
  10. VITAMIN C [Concomitant]
     Active Substance: ASCORBIC ACID
  11. L-LYSINE [Concomitant]
     Active Substance: LYSINE
  12. ALPRAZOLAM. [Concomitant]
     Active Substance: ALPRAZOLAM
     Dosage: 1.25 MG, 1X/DAY

REACTIONS (2)
  - Osteoporosis [Not Recovered/Not Resolved]
  - Fatigue [Not Recovered/Not Resolved]

NARRATIVE: CASE EVENT DATE: 2006
